FAERS Safety Report 11342158 (Version 2)
Quarter: 2015Q3

REPORT INFORMATION
  Report Type: Spontaneous
  Country: IT (occurrence: IT)
  Receive Date: 20150805
  Receipt Date: 20150826
  Transmission Date: 20151125
  Serious: Yes (Other)
  Sender: FDA-Public Use
  Company Number: IT-B.I. PHARMACEUTICALS,INC./RIDGEFIELD-2015-BI-42153GD

PATIENT
  Age: 56 Year
  Sex: Male

DRUGS (1)
  1. SIFROL [Suspect]
     Active Substance: PRAMIPEXOLE
     Indication: PARKINSON^S DISEASE
     Dosage: TITRATED UP TO 2.1 MG
     Route: 065

REACTIONS (3)
  - Dropped head syndrome [Recovered/Resolved]
  - Muscle necrosis [Recovered/Resolved]
  - Drug withdrawal syndrome [Unknown]
